FAERS Safety Report 8042315-4 (Version None)
Quarter: 2012Q1

REPORT INFORMATION
  Report Type: 
  Country: None (occurrence: None)
  Receive Date: 20120112
  Receipt Date: 20120104
  Transmission Date: 20120608
  Serious: Yes (Hospitalization, Other)
  Sender: FDA-Public Use
  Company Number: US-BAYER-2011-059264

PATIENT
  Age: 27 Year
  Sex: Female
  Weight: 110.66 kg

DRUGS (9)
  1. LORATADINE [Concomitant]
     Dosage: UNK
     Dates: start: 20090514, end: 20090901
  2. CALCIUM [Concomitant]
     Indication: VITAMIN SUPPLEMENTATION
     Dosage: 600 MG, QD
  3. VICODIN [Concomitant]
     Dosage: UNK UNK, PRN
  4. YASMIN [Suspect]
     Indication: CONTRACEPTION
     Dosage: UNK
     Dates: start: 20060101, end: 20090201
  5. FOLIC ACID [Concomitant]
  6. YASMIN [Suspect]
     Indication: MENSTRUAL CYCLE MANAGEMENT
  7. PROCHLORPERAZINE [Concomitant]
     Dosage: 10 MG, UNK
     Dates: start: 20090304
  8. MULTI-VITAMINS [Concomitant]
     Indication: VITAMIN SUPPLEMENTATION
     Dosage: UNK UNK, QD
  9. FISH OIL [Concomitant]

REACTIONS (8)
  - NAUSEA [None]
  - BILIARY COLIC [None]
  - CHOLECYSTITIS CHRONIC [None]
  - GENERAL PHYSICAL HEALTH DETERIORATION [None]
  - ANXIETY [None]
  - EMOTIONAL DISTRESS [None]
  - RECTAL HAEMORRHAGE [None]
  - ABDOMINAL PAIN [None]
